FAERS Safety Report 6330911-1 (Version None)
Quarter: 2009Q3

REPORT INFORMATION
  Report Type: 
  Country: None (occurrence: None)
  Receive Date: 20090827
  Receipt Date: 20090818
  Transmission Date: 20100115
  Serious: Yes (Life-Threatening, Other)
  Sender: FDA-Public Use
  Company Number: CH-WYE-G04047809

PATIENT
  Age: 71 Year
  Sex: Male

DRUGS (8)
  1. EFFEXOR [Suspect]
     Indication: MAJOR DEPRESSION
     Dosage: SINCE MORE THAN 10 YEARS, DOSE INCREASED UP TO 600 MG DAILY
     Route: 048
  2. EFFEXOR [Suspect]
     Indication: DYSTHYMIC DISORDER
  3. METOPROLOL TARTRATE [Concomitant]
     Indication: HYPERTENSION
     Dates: start: 19990101
  4. BUPROPION HYDROCHLORIDE [Concomitant]
     Indication: EJACULATION DISORDER
     Dosage: 300 MG EVERY 1 PRN
  5. RITALIN [Concomitant]
     Dosage: STARTED ON AN UNSPECIFIED DATE AT 40MG PER DAY
  6. XANAX [Concomitant]
     Dosage: .5 MG EVERY 1 PRN
     Dates: start: 20050101
  7. MODURETIC 5-50 [Concomitant]
     Indication: HYPERTENSION
     Dates: start: 19990101
  8. ASPIRIN [Concomitant]
     Indication: TRANSIENT ISCHAEMIC ATTACK
     Dates: start: 20050101

REACTIONS (16)
  - DRUG EFFECT DECREASED [None]
  - DRY MOUTH [None]
  - EJACULATION DISORDER [None]
  - INJURY [None]
  - MIGRAINE [None]
  - OVERDOSE [None]
  - POOR QUALITY SLEEP [None]
  - PRE-EXISTING CONDITION IMPROVED [None]
  - RESTLESS LEGS SYNDROME [None]
  - ROAD TRAFFIC ACCIDENT [None]
  - SLEEP APNOEA SYNDROME [None]
  - SOMNOLENCE [None]
  - SYNCOPE [None]
  - THERAPEUTIC RESPONSE UNEXPECTED [None]
  - TRANSIENT ISCHAEMIC ATTACK [None]
  - VENTRICULAR EXTRASYSTOLES [None]
